FAERS Safety Report 16126622 (Version 1)
Quarter: 2019Q1

REPORT INFORMATION
  Report Type: Other
  Country: DE (occurrence: DE)
  Receive Date: 20190328
  Receipt Date: 20190328
  Transmission Date: 20190418
  Serious: Yes (Disabling)
  Sender: FDA-Public Use
  Company Number: DE-MACLEODS PHARMACEUTICALS US LTD-MAC2019020588

PATIENT

DRUGS (1)
  1. LEVOFLOXACIN. [Suspect]
     Active Substance: LEVOFLOXACIN
     Indication: PRODUCT USED FOR UNKNOWN INDICATION
     Dosage: 1 DOSAGE FORM, QD, 1 X DAILY 10 DAYS
     Route: 048
     Dates: start: 20190102, end: 20190111

REACTIONS (13)
  - Abnormal faeces [Not Recovered/Not Resolved]
  - Myalgia [Unknown]
  - Hepatic enzyme increased [Recovered/Resolved]
  - Sensory disturbance [Recovered/Resolved]
  - Musculoskeletal stiffness [Unknown]
  - Tooth fracture [Recovered/Resolved]
  - Musculoskeletal pain [Unknown]
  - Tachycardia [Not Recovered/Not Resolved]
  - Joint swelling [Not Recovered/Not Resolved]
  - Pain in extremity [Unknown]
  - Abdominal pain lower [Not Recovered/Not Resolved]
  - Hypoaesthesia [Not Recovered/Not Resolved]
  - Fatigue [Not Recovered/Not Resolved]

NARRATIVE: CASE EVENT DATE: 20190104
